FAERS Safety Report 6301023-8 (Version None)
Quarter: 2009Q3

REPORT INFORMATION
  Report Type: 
  Country: None (occurrence: None)
  Receive Date: 20090807
  Receipt Date: 20090707
  Transmission Date: 20100115
  Serious: No
  Sender: FDA-Public Use
  Company Number: US-BAYER-200925813NA

PATIENT
  Sex: Female

DRUGS (2)
  1. MIRENA [Suspect]
     Indication: CONTRACEPTION
     Route: 015
     Dates: start: 20090601
  2. MIRENA [Suspect]
     Route: 015
     Dates: start: 20090428, end: 20090521

REACTIONS (5)
  - DIZZINESS [None]
  - INTRA-UTERINE CONTRACEPTIVE DEVICE EXPELLED [None]
  - PALLOR [None]
  - PRESYNCOPE [None]
  - VOMITING [None]
